APPROVED DRUG PRODUCT: TRIAMCINOLONE ACETONIDE
Active Ingredient: TRIAMCINOLONE ACETONIDE
Strength: 0.025%
Dosage Form/Route: LOTION;TOPICAL
Application: A204608 | Product #001
Applicant: BEACH PRODUCTS INC
Approved: Jul 7, 2016 | RLD: No | RS: No | Type: DISCN